FAERS Safety Report 21235655 (Version 2)
Quarter: 2022Q3

REPORT INFORMATION
  Report Type: Spontaneous
  Country: US (occurrence: US)
  Receive Date: 20220821
  Receipt Date: 20220929
  Transmission Date: 20221027
  Serious: No
  Sender: FDA-Public Use
  Company Number: US-SA-SAC20220817002131

PATIENT
  Age: 83 Year
  Sex: Female
  Weight: 111.57 kg

DRUGS (22)
  1. DUPIXENT [Suspect]
     Active Substance: DUPILUMAB
     Indication: Dermatitis atopic
     Dosage: 300 MG, QOW
     Route: 058
     Dates: start: 20210917, end: 20220907
  2. UPTRAVI [Suspect]
     Active Substance: SELEXIPAG
     Dosage: UNK, QOW
  3. VITAMIN D3 [Concomitant]
     Active Substance: CHOLECALCIFEROL
  4. SPIRONOLACTONE [Concomitant]
     Active Substance: SPIRONOLACTONE
  5. ROPINIROLE HYDROCHLORIDE [Concomitant]
     Active Substance: ROPINIROLE HYDROCHLORIDE
  6. LEVOTHYROXINE SODIUM [Concomitant]
     Active Substance: LEVOTHYROXINE SODIUM
  7. LYSINE [Concomitant]
     Active Substance: LYSINE
  8. LOSARTAN POTASSIUM [Concomitant]
     Active Substance: LOSARTAN POTASSIUM
  9. ZINC [ZINC OXIDE] [Concomitant]
  10. OPSUMIT [Concomitant]
     Active Substance: MACITENTAN
  11. SILDENAFIL CITRATE [Concomitant]
     Active Substance: SILDENAFIL CITRATE
  12. VITAMINS NOS [Concomitant]
     Active Substance: VITAMINS
  13. ALLOPURINOL [Concomitant]
     Active Substance: ALLOPURINOL
  14. ALBUTEROL SULFATE [Concomitant]
     Active Substance: ALBUTEROL SULFATE
  15. PANTOPRAZOLE SODIUM [Concomitant]
     Active Substance: PANTOPRAZOLE SODIUM
  16. SEREVENT DISKUS [Concomitant]
     Active Substance: SALMETEROL XINAFOATE
  17. BUDESONIDE [Concomitant]
     Active Substance: BUDESONIDE
     Indication: Hypersensitivity
     Route: 048
  18. FUROSEMIDE SODIUM [Concomitant]
     Active Substance: FUROSEMIDE SODIUM
  19. VITAMIN C [Concomitant]
     Active Substance: ASCORBIC ACID
  20. FLUTICASONE PROPIONATE [Concomitant]
     Active Substance: FLUTICASONE PROPIONATE
  21. PFIZER-BIONTECH COVID-19 VACCINE [Concomitant]
     Active Substance: TOZINAMERAN
  22. CARVEDILOL [Concomitant]
     Active Substance: CARVEDILOL
     Indication: Hypertension

REACTIONS (2)
  - Headache [Recovered/Resolved]
  - Diarrhoea [Recovered/Resolved]

NARRATIVE: CASE EVENT DATE: 20220407
